FAERS Safety Report 25553967 (Version 1)
Quarter: 2025Q3

REPORT INFORMATION
  Report Type: Spontaneous
  Country: US (occurrence: US)
  Receive Date: 20250715
  Receipt Date: 20250715
  Transmission Date: 20251020
  Serious: No
  Sender: ALEXION PHARMACEUTICALS
  Company Number: US-AstraZeneca-CH-00908413A

PATIENT
  Sex: Female
  Weight: 74.842 kg

DRUGS (1)
  1. FARXIGA [Suspect]
     Active Substance: DAPAGLIFLOZIN PROPANEDIOL
     Indication: Cardiac failure

REACTIONS (3)
  - Vaginal ulceration [Recovering/Resolving]
  - Fungal infection [Recovering/Resolving]
  - Burning sensation [Recovering/Resolving]
